FAERS Safety Report 7267045-8 (Version None)
Quarter: 2011Q1

REPORT INFORMATION
  Report Type: 
  Country: None (occurrence: None)
  Receive Date: 20110201
  Receipt Date: 20110118
  Transmission Date: 20110831
  Serious: Yes (Other)
  Sender: FDA-Public Use
  Company Number: PHHY2011DE04263

PATIENT
  Age: 30 Year
  Sex: Female

DRUGS (2)
  1. TIMOX [Suspect]
     Indication: CONVULSION
     Dosage: 600 MG, TID
  2. KEPPRA [Concomitant]
     Dosage: 750 MG, BID

REACTIONS (2)
  - CONVULSION [None]
  - DRUG EXPOSURE DURING PREGNANCY [None]
